FAERS Safety Report 7607421-4 (Version None)
Quarter: 2011Q3

REPORT INFORMATION
  Report Type: 
  Country: None (occurrence: None)
  Receive Date: 20110713
  Receipt Date: 20110708
  Transmission Date: 20111222
  Serious: Yes (Death, Hospitalization, Other)
  Sender: FDA-Public Use
  Company Number: GB-BRISTOL-MYERS SQUIBB COMPANY-15838246

PATIENT
  Age: 100 Year
  Sex: Male

DRUGS (1)
  1. ABILIFY [Suspect]
     Indication: DELUSION
     Dosage: INC TO 15MG ON 02DEC09 AND IN JAN10 INC TO 20MG
     Dates: start: 20091105

REACTIONS (3)
  - SEPTIC SHOCK [None]
  - CELLULITIS [None]
  - ELECTROCARDIOGRAM QT PROLONGED [None]
